FAERS Safety Report 4403588-X (Version None)
Quarter: 2004Q3

REPORT INFORMATION
  Report Type: 
  Country: None (occurrence: None)
  Receive Date: 20040721
  Receipt Date: 20040712
  Transmission Date: 20050211
  Serious: Yes (Other)
  Sender: FDA-Public Use
  Company Number: FR-GLAXOSMITHKLINE-B0338765A

PATIENT

DRUGS (2)
  1. AUGMENTIN '250' [Suspect]
     Indication: ILL-DEFINED DISORDER
     Route: 065
     Dates: start: 20040101, end: 20040101
  2. PREVISCAN [Concomitant]
     Indication: ILL-DEFINED DISORDER
     Route: 048
     Dates: start: 20040101

REACTIONS (4)
  - CLOSTRIDIUM COLITIS [None]
  - DIARRHOEA [None]
  - GASTROINTESTINAL HAEMORRHAGE [None]
  - PROTHROMBIN LEVEL DECREASED [None]
